FAERS Safety Report 23346238 (Version 2)
Quarter: 2024Q2

REPORT INFORMATION
  Report Type: Spontaneous
  Country: US (occurrence: US)
  Receive Date: 20231228
  Receipt Date: 20240422
  Transmission Date: 20240716
  Serious: Yes (Hospitalization, Other)
  Sender: FDA-Public Use
  Company Number: US-AstraZeneca-CH-00532767A

PATIENT
  Age: 14 Year
  Weight: 28 kg

DRUGS (2)
  1. ULTOMIRIS [Suspect]
     Active Substance: RAVULIZUMAB-CWVZ
     Indication: Myasthenia gravis
     Dosage: UNK
     Route: 065
  2. ULTOMIRIS [Suspect]
     Active Substance: RAVULIZUMAB-CWVZ
     Dosage: 1200 MILLIGRAM
     Route: 042
     Dates: start: 20231124

REACTIONS (3)
  - Myasthenia gravis crisis [Unknown]
  - Off label use [Unknown]
  - Malaise [Unknown]
